FAERS Safety Report 4478153-9 (Version None)
Quarter: 2004Q3

REPORT INFORMATION
  Report Type: 
  Country: None (occurrence: None)
  Receive Date: 20040923
  Receipt Date: 20040721
  Transmission Date: 20050211
  Serious: No
  Sender: FDA-Public Use
  Company Number: USA040773336

PATIENT
  Age: 72 Year
  Sex: Male

DRUGS (4)
  1. FORTEO [Suspect]
     Indication: BONE DENSITY DECREASED
     Dosage: 20 UG DAY
     Dates: start: 20040706
  2. VIOXX [Concomitant]
  3. PREDNIOSONE [Concomitant]
  4. REMICADE [Concomitant]

REACTIONS (1)
  - SCRATCH [None]
